FAERS Safety Report 10207470 (Version 1)
Quarter: 2014Q2

REPORT INFORMATION
  Report Type: Spontaneous
  Country: US (occurrence: US)
  Receive Date: 20140530
  Receipt Date: 20140530
  Transmission Date: 20141212
  Serious: No
  Sender: FDA-Public Use
  Company Number: US-GLAXOSMITHKLINE-A1044382A

PATIENT
  Age: 69 Year
  Sex: Male

DRUGS (5)
  1. VENTOLIN [Suspect]
     Indication: CHRONIC OBSTRUCTIVE PULMONARY DISEASE
     Route: 055
     Dates: start: 2012, end: 201202
  2. SPIRIVA [Concomitant]
  3. ADVAIR [Concomitant]
  4. NEBULIZER [Concomitant]
  5. UNKNOWN MEDICATION [Concomitant]

REACTIONS (1)
  - Drug ineffective [Unknown]
